FAERS Safety Report 8524453-2 (Version None)
Quarter: 2012Q3

REPORT INFORMATION
  Report Type: 
  Country: None (occurrence: None)
  Receive Date: 20120720
  Receipt Date: 20120716
  Transmission Date: 20120928
  Serious: No
  Sender: FDA-Public Use
  Company Number: US-PFIZER INC-2012172026

PATIENT
  Sex: Female
  Weight: 69.388 kg

DRUGS (3)
  1. PRISTIQ [Suspect]
     Indication: STRESS
  2. PRISTIQ [Suspect]
     Indication: DEPRESSION
     Dosage: 50 MG, DAILY
     Dates: start: 20120701
  3. BISOPROLOL FUMARATE [Suspect]
     Indication: HYPERTENSION
     Dosage: UNK

REACTIONS (7)
  - MUSCLE SPASMS [None]
  - MUSCULOSKELETAL STIFFNESS [None]
  - WEIGHT DECREASED [None]
  - BLOOD TRIGLYCERIDES INCREASED [None]
  - OVERWEIGHT [None]
  - INAPPROPRIATE SCHEDULE OF DRUG ADMINISTRATION [None]
  - HYPERTENSION [None]
